FAERS Safety Report 8809661 (Version 1)
Quarter: 2012Q4

REPORT INFORMATION
  Report Type: 
  Country: US (occurrence: US)
  Receive Date: 20120926
  Receipt Date: 20120926
  Transmission Date: 20130627
  Serious: Yes (Other)
  Sender: FDA-Public Use
  Company Number: US-ROCHE-1123483

PATIENT
  Sex: Female

DRUGS (4)
  1. AVASTIN [Suspect]
     Indication: BREAST CANCER FEMALE
     Route: 065
  2. AVASTIN [Suspect]
     Indication: METASTASES TO LIVER
  3. DOCETAXEL [Concomitant]
  4. PACLITAXEL [Concomitant]

REACTIONS (4)
  - Metastases to bone [Unknown]
  - Disease progression [Unknown]
  - Fibrosis [Unknown]
  - Lymphoedema [Unknown]
